FAERS Safety Report 10359430 (Version 1)
Quarter: 2014Q3

REPORT INFORMATION
  Report Type: Spontaneous
  Country: US (occurrence: US)
  Receive Date: 20140804
  Receipt Date: 20140804
  Transmission Date: 20150326
  Serious: No
  Sender: FDA-Public Use
  Company Number: US-BEH-2014041434

PATIENT
  Sex: Female

DRUGS (1)
  1. CARIMUNE [Suspect]
     Active Substance: HUMAN IMMUNOGLOBULIN G
     Dosage: SINCE JAN-1996
     Route: 042

REACTIONS (2)
  - Nausea [Unknown]
  - Headache [Unknown]
